FAERS Safety Report 25864004 (Version 1)
Quarter: 2025Q3

REPORT INFORMATION
  Report Type: Spontaneous
  Country: EU (occurrence: EU)
  Receive Date: 20250930
  Receipt Date: 20250930
  Transmission Date: 20251021
  Serious: Yes (Hospitalization, Other)
  Sender: AUROBINDO
  Company Number: EU-AFSSAPS-TO2025000641

PATIENT
  Age: 65 Year
  Sex: Male

DRUGS (4)
  1. CEFTRIAXONE SODIUM [Suspect]
     Active Substance: CEFTRIAXONE SODIUM
     Indication: Antibiotic prophylaxis
     Dosage: 1 GRAM, ONCE A DAY
     Route: 042
     Dates: start: 20240206
  2. TRAMADOL [Suspect]
     Active Substance: TRAMADOL
     Indication: Analgesic intervention supportive therapy
     Dosage: 1 DOSAGE FORM, TWO TIMES A DAY
     Route: 042
     Dates: start: 20250206, end: 20250223
  3. INNOHEP [Suspect]
     Active Substance: TINZAPARIN SODIUM
     Indication: Thrombosis prophylaxis
     Dosage: 4500 INTERNATIONAL UNIT, ONCE A DAY
     Route: 058
     Dates: start: 20250206, end: 20250303
  4. LEVOFLOXACIN [Suspect]
     Active Substance: LEVOFLOXACIN
     Indication: Legionella infection
     Dosage: 1 GRAM, ONCE A DAY
     Route: 042
     Dates: start: 20250206, end: 20250221

REACTIONS (2)
  - Dermo-hypodermitis [Not Recovered/Not Resolved]
  - Lichenoid keratosis [Recovering/Resolving]

NARRATIVE: CASE EVENT DATE: 20250308
